FAERS Safety Report 7235655-X (Version None)
Quarter: 2011Q1

REPORT INFORMATION
  Report Type: 
  Country: None (occurrence: None)
  Receive Date: 20110120
  Receipt Date: 20101020
  Transmission Date: 20110831
  Serious: No
  Sender: FDA-Public Use
  Company Number: US-BAYER-201023162BCC

PATIENT
  Sex: Male
  Weight: 77.098 kg

DRUGS (5)
  1. ALEVE [Suspect]
     Indication: PAIN IN EXTREMITY
     Dosage: UNK, QD
  2. ALEVE [Suspect]
     Indication: BACK PAIN
  3. SULFASALAZINE [Concomitant]
  4. FOLIC ACID [Concomitant]
  5. ALEVE [Suspect]
     Indication: NECK PAIN
     Dosage: UNK, PRN

REACTIONS (3)
  - PAIN IN EXTREMITY [None]
  - BACK PAIN [None]
  - NECK PAIN [None]
